FAERS Safety Report 4843906-1 (Version None)
Quarter: 2005Q4

REPORT INFORMATION
  Report Type: 
  Country: None (occurrence: None)
  Receive Date: 20051130
  Receipt Date: 20051130
  Transmission Date: 20060501
  Serious: Yes (Hospitalization)
  Sender: FDA-Public Use
  Company Number: None

PATIENT
  Sex: Male

DRUGS (17)
  1. GLYBURIDE [Suspect]
     Indication: DIABETES MELLITUS
     Dosage: 10 MG  BID   PO
     Route: 048
  2. ROSIGLITAZONE [Suspect]
     Indication: DIABETES MELLITUS
     Dosage: 2 MG    DAILY   PO
     Route: 048
  3. METFORMIN [Concomitant]
  4. ASCORBIC ACID [Concomitant]
  5. CHLORPHENIRAMINE MALEATE [Concomitant]
  6. CITRUCEL [Concomitant]
  7. CLONIDINE [Concomitant]
  8. DIGOXIN [Concomitant]
  9. FELODIPINE [Concomitant]
  10. FERROUS SULFATE TAB [Concomitant]
  11. LISINOPRIL [Concomitant]
  12. OMEPRAZOLE [Concomitant]
  13. POTASSIUM CHLORIDE [Concomitant]
  14. SIMVASTATIN [Concomitant]
  15. TERAZOSIN [Concomitant]
  16. TRAZODONE HCL [Concomitant]
  17. LOSARTAN [Concomitant]

REACTIONS (4)
  - ANOREXIA [None]
  - HYPOGLYCAEMIA [None]
  - LOSS OF CONSCIOUSNESS [None]
  - ORAL INTAKE REDUCED [None]
